FAERS Safety Report 10013244 (Version 1)
Quarter: 2014Q1

REPORT INFORMATION
  Report Type: Spontaneous
  Country: US (occurrence: US)
  Receive Date: 20140314
  Receipt Date: 20140314
  Transmission Date: 20141002
  Serious: No
  Sender: FDA-Public Use
  Company Number: US-009507513-1403USA005851

PATIENT
  Sex: Female

DRUGS (1)
  1. NASONEX [Suspect]
     Dosage: TWO SPRAYS IN EACH NOSTRIL DAILY
     Route: 045
     Dates: start: 201308

REACTIONS (2)
  - Drug dose omission [Unknown]
  - Product quality issue [Unknown]
